FAERS Safety Report 5454601-2 (Version None)
Quarter: 2007Q3

REPORT INFORMATION
  Report Type: 
  Country: None (occurrence: None)
  Receive Date: 20070917
  Receipt Date: 20070330
  Transmission Date: 20080115
  Serious: Yes (Hospitalization)
  Sender: FDA-Public Use
  Company Number: US-ASTRAZENECA-2006UW11517

PATIENT
  Age: 43 Year
  Sex: Male
  Weight: 96.4 kg

DRUGS (3)
  1. SEROQUEL [Suspect]
     Indication: DEPRESSION
     Route: 048
     Dates: start: 20020101
  2. SEROQUEL [Suspect]
     Indication: BIPOLAR DISORDER
     Route: 048
     Dates: start: 20020101
  3. RISPERDAL [Concomitant]
     Dates: start: 20010101

REACTIONS (2)
  - DIABETIC COMA [None]
  - TYPE 2 DIABETES MELLITUS [None]
